FAERS Safety Report 5016965-3 (Version None)
Quarter: 2006Q2

REPORT INFORMATION
  Report Type: 
  Country: None (occurrence: None)
  Receive Date: 20060526
  Receipt Date: 20060517
  Transmission Date: 20061013
  Serious: Yes (Hospitalization)
  Sender: FDA-Public Use
  Company Number: 163-20785-05090276

PATIENT
  Age: 59 Year
  Sex: Male

DRUGS (4)
  1. THALOMID [Suspect]
     Indication: MULTIPLE MYELOMA
     Dosage: 100 MG, QHS, ORAL; 50 MG, DAILY, ORAL
     Route: 048
     Dates: start: 20050801, end: 20060201
  2. THALOMID [Suspect]
     Indication: MULTIPLE MYELOMA
     Dosage: 100 MG, QHS, ORAL; 50 MG, DAILY, ORAL
     Route: 048
     Dates: start: 20060201
  3. DECADRON SRC [Concomitant]
  4. ASPIRIN [Concomitant]

REACTIONS (5)
  - CONVULSION [None]
  - DYSPHONIA [None]
  - GAIT DISTURBANCE [None]
  - NEUROPATHY PERIPHERAL [None]
  - ROTATOR CUFF SYNDROME [None]
